FAERS Safety Report 4369235-0 (Version None)
Quarter: 2004Q2

REPORT INFORMATION
  Report Type: 
  Country: None (occurrence: None)
  Receive Date: 20040603
  Receipt Date: 20031114
  Transmission Date: 20050107
  Serious: No
  Sender: FDA-Public Use
  Company Number: US-GLAXOSMITHKLINE-A0439807A

PATIENT
  Age: 29 Year
  Sex: Female

DRUGS (4)
  1. AUGMENTIN [Suspect]
     Dosage: 2TAB TWICE PER DAY
     Route: 048
     Dates: start: 20031113, end: 20031113
  2. DAILY VITAMIN [Concomitant]
  3. CLARINEX [Concomitant]
  4. COUGH SYRUP WITH CODEINE [Concomitant]

REACTIONS (3)
  - AGITATION [None]
  - PALPITATIONS [None]
  - RASH [None]
